APPROVED DRUG PRODUCT: FLUVOXAMINE MALEATE
Active Ingredient: FLUVOXAMINE MALEATE
Strength: 100MG
Dosage Form/Route: TABLET;ORAL
Application: A075900 | Product #003
Applicant: CHARTWELL RX SCIENCES LLC
Approved: Feb 23, 2006 | RLD: No | RS: No | Type: DISCN